FAERS Safety Report 11348088 (Version 1)
Quarter: 2015Q3

REPORT INFORMATION
  Report Type: Spontaneous
  Country: US (occurrence: US)
  Receive Date: 20150803
  Receipt Date: 20150803
  Transmission Date: 20151125
  Serious: No
  Sender: FDA-Public Use
  Company Number: US-ELI_LILLY_AND_COMPANY-US201202003774

PATIENT
  Age: 25 Year
  Sex: Male

DRUGS (3)
  1. ZYPREXA [Suspect]
     Active Substance: OLANZAPINE
     Dosage: 0.25 DF, QD
     Dates: start: 201201
  2. ZYPREXA [Suspect]
     Active Substance: OLANZAPINE
     Indication: AUTISM
     Dosage: 5 MG, QD
     Dates: start: 201201, end: 201201
  3. ZYPREXA [Suspect]
     Active Substance: OLANZAPINE
     Dosage: 0.5 DF, QD
     Dates: start: 201201, end: 201201

REACTIONS (7)
  - Wrong technique in product usage process [Recovered/Resolved]
  - Agitation [Unknown]
  - Nausea [Unknown]
  - Off label use [Recovered/Resolved]
  - Confusional state [Unknown]
  - Gait disturbance [Unknown]
  - Drug withdrawal syndrome [Unknown]

NARRATIVE: CASE EVENT DATE: 201201
